FAERS Safety Report 8820789 (Version 1)
Quarter: 2012Q4

REPORT INFORMATION
  Report Type: 
  Country: US (occurrence: US)
  Receive Date: 20121002
  Receipt Date: 20121002
  Transmission Date: 20130627
  Serious: Yes (Other)
  Sender: FDA-Public Use
  Company Number: US-ROCHE-1140371

PATIENT
  Age: 23 Week
  Weight: 560 kg

DRUGS (1)
  1. BEVACIZUMAB [Suspect]
     Indication: RETINOPATHY OF PREMATURITY
     Dosage: at a dose of 0.025 to 0.03 mL dose of 0.625 to 0.750 mg
     Route: 050

REACTIONS (3)
  - Retinopathy of prematurity [Unknown]
  - Retinopathy of prematurity [Unknown]
  - Retinal detachment [Unknown]
